FAERS Safety Report 6423083-6 (Version None)
Quarter: 2009Q4

REPORT INFORMATION
  Report Type: 
  Country: None (occurrence: None)
  Receive Date: 20091028
  Receipt Date: 20090806
  Transmission Date: 20100525
  Serious: Yes (Hospitalization, Other)
  Sender: FDA-Public Use
  Company Number: 2009AP003229

PATIENT
  Age: 56 Year
  Sex: Male

DRUGS (6)
  1. PRAVASTATIN SODIUM [Suspect]
     Indication: DYSLIPIDAEMIA
     Dosage: 40 MG; QD;, 80 MG; QD;
  2. CLOPIDOGREL BISULFATE [Suspect]
     Dosage: 75 MG; QD;
  3. ATAZANAVIR [Suspect]
     Indication: HIV INFECTION
     Dosage: 400 MG;
  4. TENOFOVIR DISOPROXIL FUMARATE [Suspect]
     Indication: HIV INFECTION
     Dosage: 300 MG; QD;
  5. RITONAVIR [Suspect]
     Indication: HIV INFECTION
     Dosage: 100 MG; QD;
  6. EMTRICITABINE [Suspect]
     Indication: HIV INFECTION
     Dosage: 200 MG; QD;

REACTIONS (7)
  - ALANINE AMINOTRANSFERASE INCREASED [None]
  - ASPARTATE AMINOTRANSFERASE INCREASED [None]
  - DRUG INTERACTION [None]
  - ERYTHEMA [None]
  - GAIT DISTURBANCE [None]
  - RENAL FAILURE ACUTE [None]
  - RHABDOMYOLYSIS [None]
